FAERS Safety Report 12073609 (Version 2)
Quarter: 2016Q4

REPORT INFORMATION
  Report Type: Spontaneous
  Country: ES (occurrence: ES)
  Receive Date: 20160212
  Receipt Date: 20161020
  Transmission Date: 20170206
  Serious: Yes (Hospitalization)
  Sender: FDA-Public Use
  Company Number: ES-PFIZER INC-2016077880

PATIENT
  Age: 9 Year
  Sex: Male

DRUGS (3)
  1. IBUPROFEN. [Suspect]
     Active Substance: IBUPROFEN
     Indication: APHTHOUS ULCER
     Dosage: UNK
  2. ACICLOVIR [Suspect]
     Active Substance: ACYCLOVIR
     Indication: APHTHOUS ULCER
     Dosage: UNK
     Route: 061
  3. CARBENOXOLONE. [Suspect]
     Active Substance: CARBENOXOLONE
     Indication: APHTHOUS ULCER
     Dosage: UNK

REACTIONS (1)
  - Stevens-Johnson syndrome [Recovered/Resolved]
